FAERS Safety Report 8071245-7 (Version None)
Quarter: 2012Q1

REPORT INFORMATION
  Report Type: 
  Country: None (occurrence: None)
  Receive Date: 20120125
  Receipt Date: 20120124
  Transmission Date: 20120608
  Serious: No
  Sender: FDA-Public Use
  Company Number: US-B.I. PHARMACEUTICALS,INC./RIDGEFIELD-2011-BP-27287BP

PATIENT
  Age: 84 Year
  Sex: Female

DRUGS (7)
  1. PRADAXA [Suspect]
     Indication: ATRIAL FIBRILLATION
     Dosage: 300 MG
     Route: 048
     Dates: start: 20110301
  2. METOPROLOL TARTRATE [Concomitant]
  3. AMBIEN [Concomitant]
  4. ATIVAN [Concomitant]
  5. SIMVASTATIN [Concomitant]
  6. LISINOPRIL [Concomitant]
  7. LEVOTHYROXINE SODIUM [Concomitant]

REACTIONS (2)
  - POLYMYALGIA RHEUMATICA [None]
  - JOINT STIFFNESS [None]
